FAERS Safety Report 4802144-9 (Version None)
Quarter: 2005Q4

REPORT INFORMATION
  Report Type: 
  Country: None (occurrence: None)
  Receive Date: 20051012
  Receipt Date: 20050930
  Transmission Date: 20060501
  Serious: Yes (Death)
  Sender: FDA-Public Use
  Company Number: USA-2005-0021404

PATIENT
  Age: 28 Year
  Sex: Male

DRUGS (1)
  1. OXYCODONE HCL [Suspect]

REACTIONS (9)
  - ACCIDENTAL DEATH [None]
  - ACCIDENTAL OVERDOSE [None]
  - ALCOHOL USE [None]
  - ARTERIOSCLEROSIS CORONARY ARTERY [None]
  - DRUG TOXICITY [None]
  - POLYSUBSTANCE ABUSE [None]
  - PULMONARY CONGESTION [None]
  - PULMONARY OEDEMA [None]
  - UNRESPONSIVE TO VERBAL STIMULI [None]
